FAERS Safety Report 7314901-8 (Version None)
Quarter: 2011Q1

REPORT INFORMATION
  Report Type: 
  Country: None (occurrence: None)
  Receive Date: 20110225
  Receipt Date: 20100121
  Transmission Date: 20110831
  Serious: No
  Sender: FDA-Public Use
  Company Number: US-MYLANLABS-2010S1001223

PATIENT
  Age: 2 Decade
  Sex: Female

DRUGS (1)
  1. AMNESTEEM [Suspect]
     Indication: ACNE
     Route: 048
     Dates: start: 20091210, end: 20091230

REACTIONS (4)
  - XEROSIS [None]
  - MYDRIASIS [None]
  - HEADACHE [None]
  - MYALGIA [None]
